FAERS Safety Report 7614116-X (Version None)
Quarter: 2011Q3

REPORT INFORMATION
  Report Type: 
  Country: None (occurrence: None)
  Receive Date: 20110708
  Receipt Date: 20110623
  Transmission Date: 20111222
  Serious: Yes (Other)
  Sender: FDA-Public Use
  Company Number: 2006S1003179

PATIENT
  Age: 65 Year
  Sex: Female
  Weight: 70.3075 kg

DRUGS (11)
  1. ALTACE [Concomitant]
  2. ESTRADIOL [Concomitant]
  3. GLUCOSAMINE [Concomitant]
  4. TYLENOL-500 [Concomitant]
  5. ALLEGRA [Concomitant]
  6. LIPITOR [Concomitant]
  7. PHOSPHOSODA GINGER LEMON [Suspect]
     Indication: COLONOSCOPY
     Dosage: 90 ML; TOTAL; PO
     Route: 048
     Dates: start: 20050824, end: 20050825
  8. NULYTELY [Suspect]
     Indication: COLONOSCOPY
     Dosage: ;PO
     Route: 048
     Dates: start: 20050824, end: 20050824
  9. DESIPRAMIDE HCL [Concomitant]
  10. CELEBREX [Concomitant]
  11. TEMAZEPAM [Concomitant]

REACTIONS (4)
  - ASTHENIA [None]
  - RENAL FAILURE [None]
  - LOSS OF CONSCIOUSNESS [None]
  - INFLUENZA LIKE ILLNESS [None]
